FAERS Safety Report 25574565 (Version 1)
Quarter: 2025Q3

REPORT INFORMATION
  Report Type: Spontaneous
  Country: BR (occurrence: BR)
  Receive Date: 20250718
  Receipt Date: 20250718
  Transmission Date: 20251021
  Serious: Yes (Other)
  Sender: AMGEN
  Company Number: BR-AMGEN-BRASP2025138603

PATIENT
  Age: 45 Year
  Sex: Male

DRUGS (1)
  1. ETANERCEPT [Suspect]
     Active Substance: ETANERCEPT
     Indication: Psoriatic arthropathy
     Route: 065

REACTIONS (8)
  - Tenosynovitis [Recovering/Resolving]
  - Acid fast bacilli infection [Unknown]
  - Mycobacterium abscessus infection [Recovering/Resolving]
  - Haemophagocytic lymphohistiocytosis [Unknown]
  - Atypical mycobacterial infection [Unknown]
  - Oedema peripheral [Unknown]
  - Tendon rupture [Unknown]
  - Skin ulcer [Unknown]
